FAERS Safety Report 6831520-8 (Version None)
Quarter: 2010Q3

REPORT INFORMATION
  Report Type: 
  Country: None (occurrence: None)
  Receive Date: 20100712
  Receipt Date: 20100628
  Transmission Date: 20110219
  Serious: Yes (Hospitalization)
  Sender: FDA-Public Use
  Company Number: PHHY2010FR42905

PATIENT
  Sex: Female
  Weight: 60 kg

DRUGS (7)
  1. VOLTAREN [Suspect]
     Dosage: UNK
     Route: 048
     Dates: start: 20100401, end: 20100501
  2. ADVIL LIQUI-GELS [Suspect]
     Dosage: UNK
     Route: 048
     Dates: start: 20100401, end: 20100501
  3. RHINADVIL [Suspect]
     Dosage: UNK
     Route: 048
     Dates: start: 20100401, end: 20100501
  4. AUGMENTIN '125' [Suspect]
     Dosage: 1 G, BID
     Route: 048
     Dates: start: 20100419, end: 20100424
  5. AURICULARUM [Suspect]
     Dosage: UNK
     Dates: start: 20100419, end: 20100424
  6. AMOXICILLIN [Suspect]
     Dosage: UNK
     Route: 048
     Dates: start: 20100507, end: 20100509
  7. LEVOTHYROXINE SODIUM [Concomitant]

REACTIONS (10)
  - AGRANULOCYTOSIS [None]
  - ASTHENIA [None]
  - BLOOD PHOSPHORUS DECREASED [None]
  - BONE MARROW FAILURE [None]
  - EAR PAIN [None]
  - NEUTROPHIL COUNT DECREASED [None]
  - ODYNOPHAGIA [None]
  - PYREXIA [None]
  - TONSILLITIS [None]
  - WHITE BLOOD CELL COUNT DECREASED [None]
